FAERS Safety Report 10662785 (Version 1)
Quarter: 2014Q4

REPORT INFORMATION
  Report Type: Spontaneous
  Country: US (occurrence: US)
  Receive Date: 20141218
  Receipt Date: 20141218
  Transmission Date: 20150529
  Serious: Yes (Hospitalization, Other)
  Sender: FDA-Public Use
  Company Number: US-GILEAD-2014-0127762

PATIENT
  Age: 42 Year
  Sex: Female

DRUGS (5)
  1. SPIRIVA [Concomitant]
     Active Substance: TIOTROPIUM BROMIDE MONOHYDRATE
  2. LASIX [Concomitant]
     Active Substance: FUROSEMIDE
  3. FOLIC ACID. [Concomitant]
     Active Substance: FOLIC ACID
  4. GABAPENTIN. [Concomitant]
     Active Substance: GABAPENTIN
  5. LETAIRIS [Suspect]
     Active Substance: AMBRISENTAN
     Indication: PULMONARY HYPERTENSION
     Dosage: 10 MG, QD
     Route: 065
     Dates: start: 20110124

REACTIONS (2)
  - Sickle cell anaemia with crisis [Recovered/Resolved]
  - Dehydration [Unknown]

NARRATIVE: CASE EVENT DATE: 20141129
